FAERS Safety Report 7407396-7 (Version None)
Quarter: 2011Q2

REPORT INFORMATION
  Report Type: 
  Country: None (occurrence: None)
  Receive Date: 20110411
  Receipt Date: 20110331
  Transmission Date: 20111010
  Serious: Yes (Other)
  Sender: FDA-Public Use
  Company Number: US-AMGEN-USASP2011016039

PATIENT
  Age: 61 Year
  Sex: Male

DRUGS (3)
  1. DANAZOL [Concomitant]
  2. NPLATE [Suspect]
     Indication: IDIOPATHIC THROMBOCYTOPENIC PURPURA
     Dosage: 1 A?G/KG, UNK
     Dates: start: 20091005
  3. CORTICOSTEROIDS [Concomitant]

REACTIONS (1)
  - ANEURYSM [None]
